FAERS Safety Report 16682252 (Version 1)
Quarter: 2019Q3

REPORT INFORMATION
  Report Type: Report from Study
  Country: JP (occurrence: JP)
  Receive Date: 20190808
  Receipt Date: 20190808
  Transmission Date: 20191004
  Serious: Yes (Other)
  Sender: FDA-Public Use
  Company Number: JP-ROCHE-2372278

PATIENT
  Sex: Female

DRUGS (6)
  1. XELODA [Suspect]
     Active Substance: CAPECITABINE
     Route: 048
     Dates: start: 20190426
  2. TRASTUZUMAB. [Suspect]
     Active Substance: TRASTUZUMAB
     Indication: BREAST CANCER
     Route: 041
     Dates: start: 20180226
  3. XELODA [Suspect]
     Active Substance: CAPECITABINE
     Indication: BREAST CANCER
     Dosage: IT IS ADMINISTER/ONE WEEKLY HOLIDAY MEDICINE FOR TWO WEEKS.
     Route: 048
     Dates: start: 20180227
  4. XELODA [Suspect]
     Active Substance: CAPECITABINE
     Route: 048
     Dates: start: 20190517
  5. TRASTUZUMAB. [Suspect]
     Active Substance: TRASTUZUMAB
     Route: 041
     Dates: start: 20180319
  6. XELODA [Suspect]
     Active Substance: CAPECITABINE
     Route: 048
     Dates: start: 20180416

REACTIONS (1)
  - Lymphocyte count decreased [Unknown]

NARRATIVE: CASE EVENT DATE: 20190315
